FAERS Safety Report 7028823-3 (Version None)
Quarter: 2010Q4

REPORT INFORMATION
  Report Type: 
  Country: None (occurrence: None)
  Receive Date: 20101004
  Receipt Date: 20101004
  Transmission Date: 20110411
  Serious: Yes (Death, Hospitalization)
  Sender: FDA-Public Use
  Company Number: None

PATIENT
  Age: 77 Year
  Sex: Male
  Weight: 73 kg

DRUGS (1)
  1. JEVTANA KIT [Suspect]
     Indication: PROSTATE CANCER
     Dosage: 44MG ONCE IV DRIP
     Route: 041
     Dates: start: 20100909, end: 20100909

REACTIONS (2)
  - NEUTROPENIA [None]
  - SEPTIC SHOCK [None]
